FAERS Safety Report 6403020-0 (Version None)
Quarter: 2009Q4

REPORT INFORMATION
  Report Type: 
  Country: None (occurrence: None)
  Receive Date: 20091013
  Receipt Date: 20090928
  Transmission Date: 20100525
  Serious: Yes (Other)
  Sender: FDA-Public Use
  Company Number: IMP_04581_2009

PATIENT
  Sex: Female
  Weight: 111.1766 kg

DRUGS (20)
  1. PRIMIDONE [Suspect]
     Indication: EPILEPSY
     Dosage: DF - DISCREPANCY NOTED WITH DOSING ORAL)
     Route: 048
     Dates: start: 19651201, end: 19811101
  2. PRIMIDONE [Suspect]
     Indication: EPILEPSY
     Dosage: DF - DISCREPANCY NOTED WITH DOSING ORAL)
     Route: 048
     Dates: start: 20010101
  3. ADVAIR HFA [Suspect]
     Indication: ASTHMA
     Dosage: 1 PUFF / TWICE PER DAY/ INHALED)
     Route: 055
     Dates: start: 20081101, end: 20090531
  4. ADVAIR HFA [Suspect]
     Indication: BRONCHITIS
     Dosage: 1 PUFF / TWICE PER DAY/ INHALED)
     Route: 055
     Dates: start: 20081101, end: 20090531
  5. WELLBUTRIN XL [Suspect]
     Indication: DEPRESSION
     Dosage: 150 MG ORAL
     Route: 048
     Dates: end: 20040101
  6. METFORMIN HYDROCHLORIDE [Suspect]
     Indication: BLOOD TESTOSTERONE ABNORMAL
     Dosage: 1000 MG ORAL
     Route: 048
     Dates: end: 20040101
  7. LITHIUM CARBONATE [Suspect]
     Indication: AFFECTIVE DISORDER
     Dosage: 600 MG ORAL
     Route: 048
     Dates: end: 20040101
  8. ESTRADIOL [Suspect]
     Indication: HYSTERECTOMY
     Dosage: 2 MG BID ORAL
     Route: 048
     Dates: end: 20060101
  9. DICYCLOMINE HYDROCHLORIDE [Suspect]
     Indication: DYSPEPSIA
     Dosage: 10 MG QID ORAL
     Route: 048
     Dates: end: 20070101
  10. ELETRIPTAN HYDROBROMIDE [Suspect]
     Indication: MIGRAINE
     Dosage: 20 MG ORAL
     Route: 048
     Dates: end: 20030101
  11. LANSOPRAZOLE [Suspect]
     Indication: DYSPEPSIA
     Dosage: 30 MG BID ORAL
     Route: 048
     Dates: end: 20030101
  12. BUPROPION HYDROCHLORIDE [Suspect]
     Indication: SEASONAL AFFECTIVE DISORDER
     Dosage: 75 MG QD ORAL
     Route: 048
  13. CLOTRIMAZOLE [Suspect]
     Indication: FUNGAL INFECTION
     Dosage: DF
     Dates: end: 20070101
  14. MICONAZOLE [Suspect]
     Indication: ONYCHOMYCOSIS
     Dosage: DF TOPICAL
     Route: 061
     Dates: end: 20080101
  15. PAXIL [Suspect]
     Indication: DRUG USE FOR UNKNOWN INDICATION
     Dosage: DF
  16. LEVOSALBUTAMOL [Concomitant]
  17. SUCRALFATE [Concomitant]
  18. MICONAZOLE NITRATE [Concomitant]
  19. LITHIUM [Concomitant]
  20. BUSPIRONE HCL [Concomitant]

REACTIONS (10)
  - AURICULAR SWELLING [None]
  - BLINDNESS TRANSIENT [None]
  - DEAFNESS TRANSITORY [None]
  - DRUG HYPERSENSITIVITY [None]
  - ERYTHEMA [None]
  - FEELING ABNORMAL [None]
  - HYPERACUSIS [None]
  - LOSS OF CONSCIOUSNESS [None]
  - PRURITUS [None]
  - SCRATCH [None]
